FAERS Safety Report 6680685-X (Version None)
Quarter: 2010Q2

REPORT INFORMATION
  Report Type: 
  Country: None (occurrence: None)
  Receive Date: 20100414
  Receipt Date: 20100330
  Transmission Date: 20101027
  Serious: Yes (Death)
  Sender: FDA-Public Use
  Company Number: US-JNJFOC-20100402589

PATIENT
  Age: 16 Year
  Sex: Male

DRUGS (3)
  1. FENTANYL CITRATE [Suspect]
     Indication: DRUG USE FOR UNKNOWN INDICATION
     Route: 062
  2. TETRAHYDROCANNABINOL [Interacting]
     Indication: DRUG USE FOR UNKNOWN INDICATION
  3. PAROXETINE HCL [Concomitant]
     Route: 065

REACTIONS (3)
  - DRUG ABUSE [None]
  - DRUG INTERACTION [None]
  - OVERDOSE [None]
